FAERS Safety Report 14958024 (Version 1)
Quarter: 2018Q2

REPORT INFORMATION
  Report Type: Spontaneous
  Country: KR (occurrence: KR)
  Receive Date: 20180531
  Receipt Date: 20180531
  Transmission Date: 20180711
  Serious: Yes (Other)
  Sender: FDA-Public Use
  Company Number: KR-PFIZER INC-2018213806

PATIENT
  Sex: Female

DRUGS (1)
  1. SAYANA [Suspect]
     Active Substance: MEDROXYPROGESTERONE
     Route: 058

REACTIONS (3)
  - Injection site pain [Unknown]
  - Injection site mass [Unknown]
  - Injection site necrosis [Not Recovered/Not Resolved]
